FAERS Safety Report 19410689 (Version 5)
Quarter: 2022Q3

REPORT INFORMATION
  Report Type: Spontaneous
  Country: DE (occurrence: DE)
  Receive Date: 20210614
  Receipt Date: 20220731
  Transmission Date: 20221026
  Serious: Yes (Other)
  Sender: FDA-Public Use
  Company Number: DE-BIOGEN-2021BI01021098

PATIENT
  Age: 41 Year
  Sex: Female
  Weight: 62 kg

DRUGS (3)
  1. TYSABRI [Suspect]
     Active Substance: NATALIZUMAB
     Indication: Relapsing-remitting multiple sclerosis
     Route: 050
     Dates: start: 20111201, end: 20220114
  2. TYSABRI [Suspect]
     Active Substance: NATALIZUMAB
     Route: 050
  3. TYSABRI [Suspect]
     Active Substance: NATALIZUMAB
     Route: 050

REACTIONS (1)
  - Systemic lupus erythematosus [Not Recovered/Not Resolved]

NARRATIVE: CASE EVENT DATE: 20191101
